FAERS Safety Report 9033024 (Version 1)
Quarter: 2013Q1

REPORT INFORMATION
  Report Type: Spontaneous
  Country: BR (occurrence: BR)
  Receive Date: 20130128
  Receipt Date: 20130128
  Transmission Date: 20140127
  Serious: Yes (Hospitalization, Other)
  Sender: FDA-Public Use
  Company Number: PHHY2012BR120190

PATIENT
  Sex: Female
  Weight: 109 kg

DRUGS (1)
  1. DIOVAN HCT [Suspect]
     Indication: HYPERTENSION
     Dosage: 1 DF (320/12.5 MG), QD
     Dates: start: 201202

REACTIONS (8)
  - Emphysema [Recovering/Resolving]
  - Blood pressure inadequately controlled [Recovering/Resolving]
  - Dyspnoea [Recovering/Resolving]
  - Dysstasia [Recovering/Resolving]
  - Swelling [Recovering/Resolving]
  - Apnoea [Unknown]
  - Cardiac disorder [Unknown]
  - Oedema [Unknown]
